FAERS Safety Report 6164946-9 (Version None)
Quarter: 2009Q2

REPORT INFORMATION
  Report Type: 
  Country: None (occurrence: None)
  Receive Date: 20090423
  Receipt Date: 20090301
  Transmission Date: 20091009
  Serious: No
  Sender: FDA-Public Use
  Company Number: US-BAYER-200914939NA

PATIENT
  Sex: Female

DRUGS (1)
  1. MIRENA [Suspect]
     Indication: DRUG USE FOR UNKNOWN INDICATION
     Dosage: CONTINUOUS
     Route: 015
     Dates: start: 20080701, end: 20090201

REACTIONS (4)
  - BACTERIAL INFECTION [None]
  - HYPOMENORRHOEA [None]
  - MENORRHAGIA [None]
  - VAGINAL ODOUR [None]
